FAERS Safety Report 6856284-3 (Version None)
Quarter: 2010Q2

REPORT INFORMATION
  Report Type: 
  Country: None (occurrence: None)
  Receive Date: 20100630
  Receipt Date: 20100325
  Transmission Date: 20101027
  Serious: No
  Sender: FDA-Public Use
  Company Number: 1000012770

PATIENT

DRUGS (3)
  1. BYSTOLIC [Suspect]
     Indication: HYPERTENSION
     Dosage: (10 MG),ORAL; (5 MG),ORAL
     Route: 048
     Dates: end: 20090716
  2. BYSTOLIC [Suspect]
     Indication: HYPERTENSION
     Dosage: (10 MG),ORAL; (5 MG),ORAL
     Route: 048
     Dates: start: 20090706
  3. TRIAMTERENE AND HYDROCHLOROTHIAZIDE [Concomitant]

REACTIONS (6)
  - BLOOD CREATININE INCREASED [None]
  - FATIGUE [None]
  - HYPOTENSION [None]
  - MUSCLE SPASMS [None]
  - POLLAKIURIA [None]
  - VISION BLURRED [None]
